FAERS Safety Report 7985347-4 (Version None)
Quarter: 2011Q4

REPORT INFORMATION
  Report Type: 
  Country: None (occurrence: None)
  Receive Date: 20111216
  Receipt Date: 20110901
  Transmission Date: 20120403
  Serious: No
  Sender: FDA-Public Use
  Company Number: US-ABBOTT-11P-163-0851996-00

PATIENT
  Sex: Male
  Weight: 79.45 kg

DRUGS (4)
  1. LISINOPRIL [Interacting]
     Indication: HYPERTENSION
     Dosage: 20 MG DAILY
     Dates: end: 19910101
  2. HYTRIN [Interacting]
     Dosage: 2 MG DAILY
     Dates: start: 20110705, end: 20110706
  3. HYTRIN [Suspect]
     Indication: BENIGN PROSTATIC HYPERPLASIA
     Dosage: 1 MG DAILY
     Dates: start: 20110629, end: 20110704
  4. METOPROLOL TARTRATE [Interacting]
     Indication: HYPERTENSION
     Dosage: 100 MG DAILY
     Dates: start: 20100101

REACTIONS (3)
  - BLOOD PRESSURE DECREASED [None]
  - FATIGUE [None]
  - ASTHENIA [None]
